FAERS Safety Report 22676658 (Version 2)
Quarter: 2024Q1

REPORT INFORMATION
  Report Type: Spontaneous
  Country: GB (occurrence: GB)
  Receive Date: 20230706
  Receipt Date: 20240326
  Transmission Date: 20240410
  Serious: Yes (Other)
  Sender: FDA-Public Use
  Company Number: GB-MHRA-MED-202306301644331420-PRNKZ

PATIENT
  Age: 71 Year
  Sex: Male
  Weight: 85 kg

DRUGS (2)
  1. TAMSULOSIN HYDROCHLORIDE [Suspect]
     Active Substance: TAMSULOSIN HYDROCHLORIDE
     Indication: Prostatomegaly
     Dosage: 20 MG, QD
     Route: 065
     Dates: start: 202211, end: 20230531
  2. RAMIPRIL [Suspect]
     Active Substance: RAMIPRIL
     Indication: Hypertension
     Dosage: UNK
     Dates: start: 202212, end: 20230531

REACTIONS (1)
  - Hypertension [Recovered/Resolved]

NARRATIVE: CASE EVENT DATE: 20221101
